FAERS Safety Report 7378246-2 (Version None)
Quarter: 2011Q1

REPORT INFORMATION
  Report Type: 
  Country: None (occurrence: None)
  Receive Date: 20110328
  Receipt Date: 20110321
  Transmission Date: 20110831
  Serious: Yes (Other)
  Sender: FDA-Public Use
  Company Number: B0707056A

PATIENT
  Age: 48 Year
  Sex: Male

DRUGS (4)
  1. TEMAZEPAM [Concomitant]
     Dosage: 10MG PER DAY
     Route: 048
  2. AMPICILLIN SODIUM/SULBACTAM SODIUM [Suspect]
     Dosage: 3IUAX PER DAY
     Route: 048
     Dates: start: 20110124, end: 20110216
  3. TEMAZEPAM [Concomitant]
     Dosage: 40MG PER DAY
     Route: 048
  4. CITALOPRAM [Concomitant]
     Indication: DEPRESSION
     Dosage: 20MG PER DAY
     Route: 048

REACTIONS (2)
  - SUICIDAL IDEATION [None]
  - PRODUCT SUBSTITUTION ISSUE [None]
